FAERS Safety Report 24256137 (Version 1)
Quarter: 2024Q3

REPORT INFORMATION
  Report Type: Spontaneous
  Country: CN (occurrence: CN)
  Receive Date: 20240827
  Receipt Date: 20240827
  Transmission Date: 20241016
  Serious: Yes (Other)
  Sender: PFIZER
  Company Number: CN-PFIZER INC-PV202400109341

PATIENT
  Age: 69 Year
  Sex: Male
  Weight: 58 kg

DRUGS (4)
  1. EPIRUBICIN HYDROCHLORIDE [Suspect]
     Active Substance: EPIRUBICIN HYDROCHLORIDE
     Indication: Hepatic cancer
     Dosage: 30 MG, 1X/DAY
     Dates: start: 20240808, end: 20240808
  2. FLUOROURACIL [Suspect]
     Active Substance: FLUOROURACIL
     Indication: Hepatic cancer
     Dosage: 2 G, 1X/DAY
     Dates: start: 20240808, end: 20240808
  3. OXALIPLATIN [Suspect]
     Active Substance: OXALIPLATIN
     Indication: Hepatic cancer
     Dosage: 200 MG, 1X/DAY
     Dates: start: 20240808, end: 20240808
  4. IODINE [Suspect]
     Active Substance: IODINE
     Indication: Hepatic cancer
     Dosage: 20 ML, 1X/DAY
     Dates: start: 20240808, end: 20240808

REACTIONS (2)
  - Hepatic function abnormal [Unknown]
  - Off label use [Unknown]

NARRATIVE: CASE EVENT DATE: 20240811
